FAERS Safety Report 26022941 (Version 1)
Quarter: 2025Q4

REPORT INFORMATION
  Report Type: Spontaneous
  Country: US (occurrence: US)
  Receive Date: 20251110
  Receipt Date: 20251110
  Transmission Date: 20260118
  Serious: No
  Sender: SAREPTA THERAPEUTICS
  Company Number: US-SAREPTA THERAPEUTICS INC.-SRP2025-006290

PATIENT
  Age: 8 Year
  Sex: Male
  Weight: 28.5 kg

DRUGS (11)
  1. ELEVIDYS [Suspect]
     Active Substance: DELANDISTROGENE MOXEPARVOVEC-ROKL
     Indication: Duchenne muscular dystrophy
     Dosage: UNK, SINGLE
     Dates: start: 20250512, end: 20250512
  2. PREDNISONE [Suspect]
     Active Substance: PREDNISONE
     Indication: Duchenne muscular dystrophy
     Dosage: 2.5 MILLIGRAM, QD
     Dates: start: 20250512
  3. AGAMREE [Concomitant]
     Active Substance: VAMOROLONE
     Indication: Duchenne muscular dystrophy
     Dosage: 3.5 MILLILITER (140MG), QD
     Dates: start: 20241224
  4. AMICAR [Concomitant]
     Active Substance: AMINOCAPROIC ACID
     Indication: Gingival bleeding
     Dosage: 1 MILLILITER, PRN
  5. CHILDRENS VITAMINS [Concomitant]
     Indication: Hypovitaminosis
     Dosage: 1 DOSAGE FORM, QD
  6. LISINOPRIL [Concomitant]
     Active Substance: LISINOPRIL
     Indication: Heart failure with reduced ejection fraction
     Dosage: 2.5 MILLIGRAM, QD
  7. LISINOPRIL [Concomitant]
     Active Substance: LISINOPRIL
     Indication: Cardiomyopathy
     Dosage: 7.5 MILLIGRAM, QD
     Dates: start: 20241015
  8. ALDACTONE [Concomitant]
     Active Substance: SPIRONOLACTONE
     Indication: Heart failure with reduced ejection fraction
     Dosage: 25 MILLIGRAM, QD
     Dates: start: 20241015
  9. ALDACTONE [Concomitant]
     Active Substance: SPIRONOLACTONE
     Indication: Cardiomyopathy
  10. VITAMIN D3 [Concomitant]
     Active Substance: CHOLECALCIFEROL
     Indication: Vitamin D deficiency
     Dosage: 5000 INTERNATIONAL UNIT, QD
  11. VITAMIN D3 [Concomitant]
     Active Substance: CHOLECALCIFEROL
     Indication: Bone disorder

REACTIONS (3)
  - Anger [Recovered/Resolved]
  - Irritability [Recovered/Resolved]
  - Ear infection [Not Recovered/Not Resolved]

NARRATIVE: CASE EVENT DATE: 20250501
